FAERS Safety Report 24675213 (Version 1)
Quarter: 2024Q4

REPORT INFORMATION
  Report Type: Spontaneous
  Country: US (occurrence: US)
  Receive Date: 20241128
  Receipt Date: 20241128
  Transmission Date: 20250115
  Serious: Yes (Hospitalization)
  Sender: BIOVITRUM
  Company Number: US-BIOVITRUM-2024-US-015191

PATIENT
  Age: 61 Year
  Sex: Male

DRUGS (1)
  1. VONJO [Suspect]
     Active Substance: PACRITINIB
     Indication: Myelofibrosis
     Dosage: TWICE A DAY
     Route: 048

REACTIONS (2)
  - Hepatic enzyme abnormal [Recovering/Resolving]
  - Off label use [Recovered/Resolved]
